FAERS Safety Report 5558364-1 (Version None)
Quarter: 2007Q4

REPORT INFORMATION
  Report Type: 
  Country: None (occurrence: None)
  Receive Date: 20071214
  Receipt Date: 20071203
  Transmission Date: 20080405
  Serious: Yes (Other)
  Sender: FDA-Public Use
  Company Number: US-PFIZER INC-2007101646

PATIENT
  Sex: Male
  Weight: 88.5 kg

DRUGS (5)
  1. LYRICA [Suspect]
     Indication: BACK PAIN
  2. LYRICA [Suspect]
     Indication: BURNING SENSATION
  3. SINEMET [Concomitant]
  4. REQUIP [Concomitant]
  5. RASAGILINE [Concomitant]

REACTIONS (9)
  - BURNING SENSATION [None]
  - CONFUSIONAL STATE [None]
  - DRY MOUTH [None]
  - FLATULENCE [None]
  - MUSCULOSKELETAL PAIN [None]
  - PAIN [None]
  - PAIN IN EXTREMITY [None]
  - SPEECH DISORDER [None]
  - URINARY INCONTINENCE [None]
